FAERS Safety Report 4936375-4 (Version None)
Quarter: 2006Q1

REPORT INFORMATION
  Report Type: 
  Country: None (occurrence: None)
  Receive Date: 20060302
  Receipt Date: 20060207
  Transmission Date: 20060701
  Serious: Yes (Hospitalization, Other)
  Sender: FDA-Public Use
  Company Number: US200602001408

PATIENT
  Age: 55 Year
  Sex: Female

DRUGS (5)
  1. FORTEO [Suspect]
     Indication: OSTEOPOROSIS
     Dates: start: 20051219
  2. FORTEO [Concomitant]
  3. THYROID TAB [Concomitant]
  4. CALTRATE (CALCIUM CARBONATE) [Concomitant]
  5. ASPIRIN [Concomitant]

REACTIONS (6)
  - CONTUSION [None]
  - CONVULSION [None]
  - DIZZINESS [None]
  - HAEMORRHAGE [None]
  - HEAD INJURY [None]
  - PHARMACEUTICAL PRODUCT COMPLAINT [None]
